FAERS Safety Report 26207807 (Version 1)
Quarter: 2025Q4

REPORT INFORMATION
  Report Type: Spontaneous
  Country: EU (occurrence: EU)
  Receive Date: 20251229
  Receipt Date: 20251229
  Transmission Date: 20260117
  Serious: Yes (Hospitalization)
  Sender: MYLAN
  Company Number: None

PATIENT
  Age: 72 Year
  Sex: Female
  Weight: 71 kg

DRUGS (12)
  1. MIRTAZAPINE [Suspect]
     Active Substance: MIRTAZAPINE
     Indication: Depression
     Dosage: 15 MILLIGRAM, QD
     Route: 061
     Dates: start: 20250725, end: 20251124
  2. MIRTAZAPINE [Suspect]
     Active Substance: MIRTAZAPINE
     Dosage: 15 MILLIGRAM, QD
     Route: 048
     Dates: start: 20250725, end: 20251124
  3. MIRTAZAPINE [Suspect]
     Active Substance: MIRTAZAPINE
     Dosage: 15 MILLIGRAM, QD
     Route: 048
     Dates: start: 20250725, end: 20251124
  4. MIRTAZAPINE [Suspect]
     Active Substance: MIRTAZAPINE
     Dosage: 15 MILLIGRAM, QD
     Route: 061
     Dates: start: 20250725, end: 20251124
  5. ARSENIC [Suspect]
     Active Substance: ARSENIC
     Indication: Acute myeloid leukaemia
     Dosage: 0.15 MILLIGRAM/KILOGRAM, QD (DAY1-5, 8-12, 15-19, 22-26)
     Dates: start: 20250922
  6. ARSENIC [Suspect]
     Active Substance: ARSENIC
     Dosage: 0.15 MILLIGRAM/KILOGRAM, QD (DAY1-5, 8-12, 15-19, 22-26)
     Route: 042
     Dates: start: 20250922
  7. ARSENIC [Suspect]
     Active Substance: ARSENIC
     Dosage: 0.15 MILLIGRAM/KILOGRAM, QD (DAY1-5, 8-12, 15-19, 22-26)
     Route: 042
     Dates: start: 20250922
  8. ARSENIC [Suspect]
     Active Substance: ARSENIC
     Dosage: 0.15 MILLIGRAM/KILOGRAM, QD (DAY1-5, 8-12, 15-19, 22-26)
     Dates: start: 20250922
  9. VESANOID [Suspect]
     Active Substance: TRETINOIN
     Indication: Acute myeloid leukaemia
     Dosage: 40 MILLIGRAM, BID (DURING 2 WEEKS) 12 HOURS
     Route: 061
     Dates: start: 20250922
  10. VESANOID [Suspect]
     Active Substance: TRETINOIN
     Dosage: 40 MILLIGRAM, BID (DURING 2 WEEKS) 12 HOURS
     Route: 048
     Dates: start: 20250922
  11. VESANOID [Suspect]
     Active Substance: TRETINOIN
     Dosage: 40 MILLIGRAM, BID (DURING 2 WEEKS) 12 HOURS
     Route: 048
     Dates: start: 20250922
  12. VESANOID [Suspect]
     Active Substance: TRETINOIN
     Dosage: 40 MILLIGRAM, BID (DURING 2 WEEKS) 12 HOURS
     Route: 061
     Dates: start: 20250922

REACTIONS (2)
  - Neuralgia [Recovering/Resolving]
  - Paraesthesia oral [Recovering/Resolving]

NARRATIVE: CASE EVENT DATE: 20251010
